FAERS Safety Report 5833450-7 (Version None)
Quarter: 2008Q3

REPORT INFORMATION
  Report Type: 
  Country: None (occurrence: None)
  Receive Date: 20080801
  Receipt Date: 20080801
  Transmission Date: 20090109
  Serious: Yes (Other)
  Sender: FDA-Public Use
  Company Number: None

PATIENT
  Age: 22 Year
  Sex: Female
  Weight: 50.3493 kg

DRUGS (2)
  1. DEPO-PROVERA [Suspect]
     Indication: CONTRACEPTION
     Dosage: 104 MG SUB CU Q 11-13 WKS
     Route: 058
     Dates: start: 20060314, end: 20070301
  2. CALCIUM SUPPLEMENT [Concomitant]

REACTIONS (3)
  - PAIN OF SKIN [None]
  - PHARMACEUTICAL PRODUCT COMPLAINT [None]
  - SKIN NODULE [None]
